FAERS Safety Report 6053877-0 (Version None)
Quarter: 2009Q1

REPORT INFORMATION
  Report Type: 
  Country: None (occurrence: None)
  Receive Date: 20090127
  Receipt Date: 20090114
  Transmission Date: 20090719
  Serious: Yes (Hospitalization)
  Sender: FDA-Public Use
  Company Number: IT-GENENTECH-275839

PATIENT
  Sex: Male

DRUGS (7)
  1. AVASTIN [Suspect]
     Indication: SURGERY
     Dosage: 1 UNK, QD
     Route: 030
     Dates: start: 20081112, end: 20081112
  2. GENTAMICIN [Suspect]
     Indication: SURGERY
     Dosage: 1 UNK, QD
     Route: 030
     Dates: start: 20081112, end: 20081112
  3. DIAMOX [Suspect]
     Indication: SURGERY
     Dosage: UNK
     Route: 048
     Dates: start: 20081112, end: 20081112
  4. DICHLORPHENAMIDE [Suspect]
     Indication: SURGERY
     Dosage: 1 UNK, QD
     Route: 030
     Dates: start: 20081112, end: 20081112
  5. OFLOXACIN [Suspect]
     Indication: SURGERY
     Dosage: 1 UNK, QD
     Route: 042
     Dates: start: 20081112, end: 20081112
  6. VENTOLIN [Concomitant]
     Indication: DRUG USE FOR UNKNOWN INDICATION
     Dosage: UNK
     Dates: start: 20080101
  7. LASIX [Concomitant]
     Indication: DRUG USE FOR UNKNOWN INDICATION
     Dosage: UNK
     Dates: start: 20040101

REACTIONS (2)
  - DERMATITIS BULLOUS [None]
  - PRURITUS [None]
